FAERS Safety Report 4279458-7 (Version None)
Quarter: 2004Q1

REPORT INFORMATION
  Report Type: 
  Country: None (occurrence: None)
  Receive Date: 20040127
  Receipt Date: 20031105
  Transmission Date: 20041129
  Serious: Yes (Other)
  Sender: FDA-Public Use
  Company Number: US-GLAXOSMITHKLINE-A0433323A

PATIENT
  Sex: Female

DRUGS (2)
  1. IMITREX [Suspect]
     Route: 042
  2. IMITREX [Suspect]
     Dosage: 100MG AS REQUIRED
     Route: 048

REACTIONS (2)
  - ABORTION SPONTANEOUS [None]
  - DRUG EXPOSURE DURING PREGNANCY [None]
